FAERS Safety Report 11640321 (Version 3)
Quarter: 2016Q1

REPORT INFORMATION
  Report Type: Spontaneous
  Country: US (occurrence: US)
  Receive Date: 20151019
  Receipt Date: 20160217
  Transmission Date: 20160525
  Serious: Yes (Death, Hospitalization, Other)
  Sender: FDA-Public Use
  Company Number: US-GLAXOSMITHKLINE-US2015147393

PATIENT
  Age: 62 Year
  Sex: Female

DRUGS (1)
  1. VENTOLIN HFA [Suspect]
     Active Substance: ALBUTEROL SULFATE
     Indication: PRODUCT USED FOR UNKNOWN INDICATION
     Dosage: 2 PUFF(S), QID
     Route: 055
     Dates: start: 201406

REACTIONS (13)
  - Dizziness [Unknown]
  - Alanine aminotransferase increased [Unknown]
  - Gallbladder disorder [Unknown]
  - Aspartate aminotransferase increased [Unknown]
  - Abdominal pain [Unknown]
  - Nausea [Unknown]
  - Multiple organ dysfunction syndrome [Unknown]
  - Blood bilirubin increased [Unknown]
  - Jaundice [Unknown]
  - Decreased appetite [Unknown]
  - Cardiac failure [Fatal]
  - Hepatic failure [Fatal]
  - Abdominal pain upper [Unknown]

NARRATIVE: CASE EVENT DATE: 20150831
